FAERS Safety Report 4823265-0 (Version None)
Quarter: 2005Q4

REPORT INFORMATION
  Report Type: 
  Country: None (occurrence: None)
  Receive Date: 20051107
  Receipt Date: 20051027
  Transmission Date: 20060501
  Serious: Yes (Hospitalization)
  Sender: FDA-Public Use
  Company Number: 2005144184

PATIENT
  Age: 49 Year
  Sex: Male

DRUGS (2)
  1. AMLODIPINE [Suspect]
     Indication: ILL-DEFINED DISORDER
     Dosage: ORAL
     Route: 048
  2. DRUG, (DRUG,) [Suspect]
     Indication: ILL-DEFINED DISORDER

REACTIONS (5)
  - INTENTIONAL DRUG MISUSE [None]
  - LOSS OF CONSCIOUSNESS [None]
  - RENAL FAILURE ACUTE [None]
  - SHOCK [None]
  - SUICIDE ATTEMPT [None]
